FAERS Safety Report 18940852 (Version 1)
Quarter: 2021Q1

REPORT INFORMATION
  Report Type: Spontaneous
  Country: DE (occurrence: DE)
  Receive Date: 20210225
  Receipt Date: 20210225
  Transmission Date: 20210420
  Serious: Yes (Hospitalization)
  Sender: FDA-Public Use
  Company Number: NVSC2021DE039119

PATIENT
  Sex: Female

DRUGS (4)
  1. IMMUNOSPORIN [Suspect]
     Active Substance: CYCLOSPORINE
     Indication: PRODUCT USED FOR UNKNOWN INDICATION
     Dosage: 100 MG, BID
     Route: 065
  2. HIGROTON [Suspect]
     Active Substance: CHLORTHALIDONE
     Indication: HYPERTENSION
     Dosage: UNK
     Route: 065
  3. IMMUNOSPORIN [Interacting]
     Active Substance: CYCLOSPORINE
     Dosage: 100 MG, QD
     Route: 065
  4. FELODIPINE. [Interacting]
     Active Substance: FELODIPINE
     Indication: HYPERTENSION
     Dosage: UNK
     Route: 065

REACTIONS (5)
  - Syncope [Recovered/Resolved]
  - Therapeutic product effect increased [Recovered/Resolved]
  - Dizziness [Unknown]
  - Drug interaction [Recovered/Resolved]
  - Nausea [Unknown]
